FAERS Safety Report 6955331-8 (Version None)
Quarter: 2010Q3

REPORT INFORMATION
  Report Type: 
  Country: None (occurrence: None)
  Receive Date: 20100826
  Receipt Date: 20100826
  Transmission Date: 20110219
  Serious: No
  Sender: FDA-Public Use
  Company Number: None

PATIENT
  Sex: Male
  Weight: 74.9 kg

DRUGS (2)
  1. GEMCITABINE HCL [Suspect]
     Dosage: 3600 MG
     Dates: end: 20100419
  2. TARCEVA [Suspect]
     Dosage: 1500 MG
     Dates: end: 20100426

REACTIONS (1)
  - BLOOD SODIUM ABNORMAL [None]
